FAERS Safety Report 5156080-1 (Version None)
Quarter: 2006Q4

REPORT INFORMATION
  Report Type: 
  Country: None (occurrence: None)
  Receive Date: 20061122
  Receipt Date: 20061113
  Transmission Date: 20070319
  Serious: Yes (Hospitalization)
  Sender: FDA-Public Use
  Company Number: PHNU2006DE03728

PATIENT
  Sex: Female

DRUGS (13)
  1. LUDIOMIL [Suspect]
     Indication: DEPRESSION
     Dosage: 100 MG/DAY
     Route: 048
     Dates: start: 20060127, end: 20060222
  2. LUDIOMIL [Suspect]
     Dosage: 125 MG/DAY
     Route: 048
     Dates: start: 20060223, end: 20060228
  3. LUDIOMIL [Suspect]
     Dosage: 150 MG/DAY
     Route: 048
     Dates: end: 20060308
  4. LUDIOMIL [Suspect]
     Dosage: 125 MG/DAY
     Route: 048
     Dates: start: 20060309, end: 20060312
  5. LUDIOMIL [Suspect]
     Dosage: 100 MG/DAY
     Route: 048
     Dates: start: 20060313, end: 20060314
  6. LUDIOMIL [Suspect]
     Dosage: 75 MG/DAY
     Route: 048
     Dates: start: 20060315, end: 20060321
  7. LAMICTAL [Suspect]
     Indication: DEPRESSION
     Dosage: 25 MG/DAY
     Route: 048
     Dates: start: 20060302, end: 20060308
  8. LAMICTAL [Suspect]
     Dosage: 50 MG/DAY
     Route: 048
     Dates: start: 20060309, end: 20060312
  9. MELPERONE [Suspect]
     Indication: DEPRESSION
     Dosage: 100 MG/DAY
     Route: 048
     Dates: start: 20060301, end: 20060305
  10. MELPERONE [Suspect]
     Dosage: 75 MG/DAY
     Route: 048
     Dates: start: 20060306, end: 20060323
  11. MELPERONE [Suspect]
     Dosage: 100 MG/DAY
     Route: 048
     Dates: start: 20060324
  12. ZYPREXA [Suspect]
     Indication: DEPRESSION
     Dosage: 5 MG/DAY
     Route: 048
     Dates: start: 20060307, end: 20060323
  13. ZYPREXA [Suspect]
     Dosage: 7.5 MG/DAY
     Route: 048
     Dates: start: 20060324

REACTIONS (3)
  - DRUG INTERACTION [None]
  - DYSPHEMIA [None]
  - TIC [None]
